FAERS Safety Report 20594343 (Version 1)
Quarter: 2022Q1

REPORT INFORMATION
  Report Type: Spontaneous
  Country: US (occurrence: US)
  Receive Date: 20220315
  Receipt Date: 20220315
  Transmission Date: 20220423
  Serious: No
  Sender: FDA-Public Use
  Company Number: US-ALLERGAN-2125676US

PATIENT
  Sex: Female
  Weight: 89.36 kg

DRUGS (1)
  1. NORCO [Suspect]
     Active Substance: ACETAMINOPHEN\HYDROCODONE BITARTRATE
     Indication: Neck pain
     Dosage: FOUR TIMES DAILY AS NEEDED, MINIMUM ONE TABLET EVERY 12 HOURS

REACTIONS (1)
  - Drug ineffective [Unknown]
